FAERS Safety Report 4663254-2 (Version None)
Quarter: 2005Q2

REPORT INFORMATION
  Report Type: 
  Country: None (occurrence: None)
  Receive Date: 20050513
  Receipt Date: 20050427
  Transmission Date: 20051028
  Serious: Yes (Other)
  Sender: FDA-Public Use
  Company Number: ACO_0144_2005

PATIENT
  Age: 33 Year
  Sex: Female

DRUGS (5)
  1. SIRDALUD [Suspect]
     Dosage: 4 TAB QDAY PO
     Route: 048
     Dates: start: 20000101
  2. CIPRALEX [Suspect]
     Dosage: 10 MG NIGHTLY PO
     Route: 048
     Dates: start: 20041025
  3. FELDEN [Concomitant]
  4. PONSTAN [Concomitant]
  5. XEFO [Concomitant]

REACTIONS (7)
  - BURNING SENSATION [None]
  - DIZZINESS [None]
  - DYSPNOEA [None]
  - MUSCULAR WEAKNESS [None]
  - SOMNOLENCE [None]
  - SUDDEN ONSET OF SLEEP [None]
  - TONGUE DISORDER [None]
